FAERS Safety Report 13665169 (Version 3)
Quarter: 2017Q3

REPORT INFORMATION
  Report Type: Spontaneous
  Country: JP (occurrence: JP)
  Receive Date: 20170619
  Receipt Date: 20170804
  Transmission Date: 20171127
  Serious: Yes (Life-Threatening, Hospitalization)
  Sender: FDA-Public Use
  Company Number: JP-BAYER-2017-112667

PATIENT
  Age: 2 Year
  Sex: Male
  Weight: 12 kg

DRUGS (8)
  1. ASPIRIN 100 % [Suspect]
     Active Substance: ASPIRIN
     Indication: KAWASAKI^S DISEASE
     Dosage: DAILY DOSE 30 MG/KG
     Route: 048
  2. CEFDITOREN PIVOXIL. [Concomitant]
     Active Substance: CEFDITOREN PIVOXIL
     Indication: INFECTION PROPHYLAXIS
     Dosage: UNK
     Route: 048
     Dates: start: 20170411, end: 20170418
  3. ASPIRIN 100 % [Suspect]
     Active Substance: ASPIRIN
     Indication: KAWASAKI^S DISEASE
     Dosage: DAILY DOSE 30 MG/KG
     Route: 048
     Dates: start: 20170411, end: 20170428
  4. ASPIRIN 100 % [Suspect]
     Active Substance: ASPIRIN
     Indication: KAWASAKI^S DISEASE
     Dosage: DAILY DOSE 5 MG/KG
     Route: 048
  5. ASPIRIN 100 % [Suspect]
     Active Substance: ASPIRIN
     Indication: KAWASAKI^S DISEASE
     Dosage: DAILY DOSE 3 MG/KG
     Route: 048
  6. ASPIRIN 100 % [Suspect]
     Active Substance: ASPIRIN
     Indication: ANTIPLATELET THERAPY
     Dosage: DAILY DOSE 10 MG/KG
     Route: 048
  7. VENILON [Concomitant]
     Active Substance: HUMAN IMMUNOGLOBULIN G
     Indication: INFLAMMATION
     Dosage: DAILY DOSE 1000 MG/KG
     Route: 041
     Dates: start: 20170411, end: 20170412
  8. VENILON [Concomitant]
     Active Substance: HUMAN IMMUNOGLOBULIN G
     Indication: KAWASAKI^S DISEASE

REACTIONS (5)
  - Anaemia [Recovering/Resolving]
  - Malaise [Recovering/Resolving]
  - Pallor [Recovering/Resolving]
  - Vomiting [Recovering/Resolving]
  - Duodenal ulcer [Recovering/Resolving]

NARRATIVE: CASE EVENT DATE: 20170419
